FAERS Safety Report 20254304 (Version 1)
Quarter: 2021Q4

REPORT INFORMATION
  Report Type: Spontaneous
  Country: RU (occurrence: RU)
  Receive Date: 20211230
  Receipt Date: 20211230
  Transmission Date: 20220303
  Serious: Yes (Hospitalization, Other)
  Sender: FDA-Public Use
  Company Number: RU-AUROBINDO-AUR-APL-2012-03874

PATIENT
  Age: 63 Year
  Sex: Female
  Weight: 82 kg

DRUGS (14)
  1. AMOXICILLIN\CLAVULANIC ACID [Suspect]
     Active Substance: AMOXICILLIN\CLAVULANIC ACID
     Indication: Product used for unknown indication
     Dosage: 1.2 GRAM, 3 TIMES A DAY
     Route: 040
  2. CEFOTAXIME [Suspect]
     Active Substance: CEFOTAXIME SODIUM
     Indication: Pneumonia
     Dosage: UNK
     Route: 065
  3. CIPROFLOXACIN HYDROCHLORIDE [Suspect]
     Active Substance: CIPROFLOXACIN HYDROCHLORIDE
     Indication: Pneumonia
     Dosage: UNK
     Route: 065
  4. CIPROFLOXACIN [Suspect]
     Active Substance: CIPROFLOXACIN
     Indication: Pneumonia
     Dosage: UNK
     Route: 065
  5. METRONIDAZOLE [Suspect]
     Active Substance: METRONIDAZOLE
     Indication: Pneumonia
     Dosage: UNK
     Route: 065
  6. AZITHROMYCIN ANHYDROUS [Suspect]
     Active Substance: AZITHROMYCIN ANHYDROUS
     Indication: Pneumonia
     Dosage: UNK
     Route: 065
  7. ENALAPRIL [Suspect]
     Active Substance: ENALAPRIL
     Indication: Hypertension
     Dosage: 10 MILLIGRAM, ONCE A DAY
     Route: 065
  8. ENALAPRIL [Suspect]
     Active Substance: ENALAPRIL
     Dosage: 5 MILLIGRAM, TWO TIMES A DAY
     Route: 065
  9. AMOXICILLIN [Suspect]
     Active Substance: AMOXICILLIN
     Indication: Interstitial lung disease
     Dosage: 1.2 GRAM, 3 TIMES A DAY
     Route: 040
  10. MELDONIUM [Suspect]
     Active Substance: MELDONIUM
     Indication: Interstitial lung disease
     Dosage: 5 MILLILITER
     Route: 065
  11. METAMIZOLE SODIUM [Suspect]
     Active Substance: METAMIZOLE SODIUM
     Indication: Product used for unknown indication
     Dosage: 2 MILLILITER
     Route: 065
  12. SODIUM CHLORIDE [Suspect]
     Active Substance: SODIUM CHLORIDE
     Indication: Product used for unknown indication
     Dosage: 200 MILLILITER, ONCE A DAY
     Route: 065
  13. DICLOFENAC [Suspect]
     Active Substance: DICLOFENAC
     Indication: Product used for unknown indication
     Dosage: 25 MILLIGRAM, 3 TIMES A DAY
     Route: 065
  14. DIFLUCAN [Suspect]
     Active Substance: FLUCONAZOLE
     Indication: Product used for unknown indication
     Dosage: 400 MILLIGRAM, TWO TIMES A DAY
     Route: 065

REACTIONS (7)
  - Hypersensitivity pneumonitis [Recovered/Resolved with Sequelae]
  - Pulmonary fibrosis [Not Recovered/Not Resolved]
  - Interstitial lung disease [Recovered/Resolved]
  - Disease progression [Recovered/Resolved]
  - Dyspnoea [Recovered/Resolved]
  - Asthenia [Recovered/Resolved]
  - Decreased appetite [Recovered/Resolved]
